FAERS Safety Report 9403213 (Version 1)
Quarter: 2013Q3

REPORT INFORMATION
  Report Type: Spontaneous
  Country: US (occurrence: US)
  Receive Date: 20130716
  Receipt Date: 20130716
  Transmission Date: 20140515
  Serious: Yes (Hospitalization)
  Sender: FDA-Public Use
  Company Number: US-BAYER-2013-085756

PATIENT
  Age: 50 Year
  Sex: Female

DRUGS (2)
  1. MAGNEVIST [Suspect]
     Indication: NUCLEAR MAGNETIC RESONANCE IMAGING
     Dosage: 20CC - LEFT HAND
     Route: 042
     Dates: start: 20130705
  2. MAGNEVIST [Suspect]
     Indication: UTERINE LEIOMYOMA

REACTIONS (1)
  - Cardiac arrest [Not Recovered/Not Resolved]
